FAERS Safety Report 15108954 (Version 4)
Quarter: 2018Q3

REPORT INFORMATION
  Report Type: Spontaneous
  Country: IL (occurrence: IL)
  Receive Date: 20180705
  Receipt Date: 20180924
  Transmission Date: 20181010
  Serious: Yes (Hospitalization)
  Sender: FDA-Public Use
  Company Number: IL-BAXTER-2018BAX018488

PATIENT
  Age: 20 Year
  Sex: Female

DRUGS (5)
  1. NACL 0.9% INTRAVENOUS SOLUTION BP [Suspect]
     Active Substance: SODIUM CHLORIDE
     Indication: MEDICATION DILUTION
     Dosage: PICC?LINE
     Route: 042
     Dates: start: 20180622, end: 20180622
  2. TAZOCIN [Suspect]
     Active Substance: PIPERACILLIN SODIUM\TAZOBACTAM SODIUM
     Route: 042
     Dates: start: 20180623, end: 20180624
  3. NUROFEN [Suspect]
     Active Substance: IBUPROFEN
     Indication: ASTHENIA
  4. NUROFEN [Suspect]
     Active Substance: IBUPROFEN
     Indication: TOXICITY TO VARIOUS AGENTS
     Route: 065
     Dates: start: 20180622
  5. TAZOCIN [Suspect]
     Active Substance: PIPERACILLIN SODIUM\TAZOBACTAM SODIUM
     Indication: LUNG ABSCESS
     Dosage: PWD, PIPERACILLIN/ TAZOBACTAM 4GR/500 MG, COMPOUNDED WITH NACL 0.9%
     Route: 042
     Dates: start: 20180622, end: 20180622

REACTIONS (5)
  - Neutropenia [Recovered/Resolved]
  - Toxicity to various agents [Recovered/Resolved]
  - Asthenia [Recovered/Resolved]
  - Leukopenia [Recovered/Resolved]
  - Chills [Recovered/Resolved]

NARRATIVE: CASE EVENT DATE: 201806
